FAERS Safety Report 24251192 (Version 3)
Quarter: 2024Q3

REPORT INFORMATION
  Report Type: Report from Study
  Country: US (occurrence: US)
  Receive Date: 20240826
  Receipt Date: 20240926
  Transmission Date: 20241017
  Serious: Yes (Other)
  Sender: SUNOVION
  Company Number: US-SUMITOMO PHARMA SWITZERLAND GMBH-2024SPA000420

PATIENT

DRUGS (2)
  1. ORGOVYX [Suspect]
     Active Substance: RELUGOLIX
     Indication: Prostate cancer
     Dosage: UNK
     Route: 048
  2. LYNPARZA [Concomitant]
     Active Substance: OLAPARIB
     Indication: Prostate cancer
     Dosage: 300 MG, BID
     Route: 065
     Dates: start: 20231222

REACTIONS (3)
  - Prostate cancer [Unknown]
  - Muscle spasms [Unknown]
  - Drug ineffective [Unknown]
